FAERS Safety Report 4681786-8 (Version None)
Quarter: 2005Q2

REPORT INFORMATION
  Report Type: 
  Country: None (occurrence: None)
  Receive Date: 20050601
  Receipt Date: 20050516
  Transmission Date: 20051028
  Serious: Yes (Other)
  Sender: FDA-Public Use
  Company Number: USA050392714

PATIENT
  Age: 55 Year
  Sex: Female

DRUGS (1)
  1. FORTEO [Suspect]
     Indication: OSTEOPOROSIS
     Dates: start: 20040901, end: 20050301

REACTIONS (4)
  - BONE DISORDER [None]
  - BONE NEOPLASM [None]
  - OSTEONECROSIS [None]
  - PAIN IN JAW [None]
